FAERS Safety Report 6213606-4 (Version None)
Quarter: 2009Q2

REPORT INFORMATION
  Report Type: 
  Country: None (occurrence: None)
  Receive Date: 20090603
  Receipt Date: 20090527
  Transmission Date: 20091009
  Serious: Yes (Life-Threatening, Hospitalization, Other)
  Sender: FDA-Public Use
  Company Number: CH-PFIZER INC-2009218586

PATIENT
  Age: 85 Year

DRUGS (10)
  1. SORTIS [Suspect]
     Indication: MYOCARDIAL ISCHAEMIA
     Dosage: 40 MG, 1X/DAY
     Route: 048
     Dates: start: 20090123, end: 20090128
  2. CORDARONE [Interacting]
     Dosage: 200 MG, 1X/DAY
     Route: 048
  3. ASPIRIN [Concomitant]
     Dosage: UNK
  4. DIGOXIN [Concomitant]
     Dosage: UNK
  5. PREDNISON [Concomitant]
     Dosage: UNK
  6. NEXIUM [Concomitant]
     Dosage: UNK
  7. ELTROXIN [Concomitant]
     Dosage: UNK
  8. ENOXAPARIN SODIUM [Concomitant]
     Dosage: UNK
  9. HALDOL [Concomitant]
     Dosage: UNK
  10. SITAGLIPTIN [Concomitant]
     Dosage: UNK

REACTIONS (2)
  - DRUG INTERACTION [None]
  - PARAPLEGIA [None]
